FAERS Safety Report 21043895 (Version 1)
Quarter: 2022Q3

REPORT INFORMATION
  Report Type: Report from Study
  Country: US (occurrence: US)
  Receive Date: 20220705
  Receipt Date: 20220705
  Transmission Date: 20221027
  Serious: Yes (Hospitalization)
  Sender: FDA-Public Use
  Company Number: US-SERVIER-S22006828

PATIENT

DRUGS (4)
  1. PEGASPARGASE [Suspect]
     Active Substance: PEGASPARGASE
     Indication: B precursor type acute leukaemia
     Dosage: 7264 IU TOTAL DOSE
     Route: 042
     Dates: start: 20220316, end: 20220405
  2. METHOTREXATE [Suspect]
     Active Substance: METHOTREXATE
     Indication: B precursor type acute leukaemia
     Dosage: 849 MG TOTAL DOSE
     Route: 042
     Dates: start: 20220315, end: 20220414
  3. METHOTREXATE [Suspect]
     Active Substance: METHOTREXATE
     Dosage: 30 MG TOTAL DOSE
     Route: 037
     Dates: start: 20220315, end: 20220414
  4. VINCRISTINE [Suspect]
     Active Substance: VINCRISTINE
     Indication: B precursor type acute leukaemia
     Dosage: 6 MG TOTAL DOSE
     Route: 042
     Dates: start: 20220315, end: 20220404

REACTIONS (1)
  - Pneumonia [Not Recovered/Not Resolved]

NARRATIVE: CASE EVENT DATE: 20220607
